FAERS Safety Report 11408950 (Version 5)
Quarter: 2016Q1

REPORT INFORMATION
  Report Type: Report from Study
  Country: CA (occurrence: CA)
  Receive Date: 20150824
  Receipt Date: 20160310
  Transmission Date: 20160525
  Serious: Yes (Hospitalization, Other)
  Sender: FDA-Public Use
  Company Number: CA-ROCHE-1450100

PATIENT
  Age: 79 Year
  Sex: Female

DRUGS (26)
  1. VENTOLIN [Concomitant]
     Active Substance: ALBUTEROL SULFATE
  2. NORTRIPTYLINE [Concomitant]
     Active Substance: NORTRIPTYLINE
  3. DIMENHYDRINATE. [Concomitant]
     Active Substance: DIMENHYDRINATE
  4. ACETAMINOPHEN. [Concomitant]
     Active Substance: ACETAMINOPHEN
     Indication: PREMEDICATION
     Route: 048
     Dates: start: 20140813
  5. CLONIDINE. [Concomitant]
     Active Substance: CLONIDINE
  6. FOLIC ACID. [Concomitant]
     Active Substance: FOLIC ACID
  7. VOLTAREN [Concomitant]
     Active Substance: DICLOFENAC SODIUM
     Route: 047
  8. ATORVASTATIN [Concomitant]
     Active Substance: ATORVASTATIN
  9. PROLIA [Concomitant]
     Active Substance: DENOSUMAB
  10. ADALAT [Concomitant]
     Active Substance: NIFEDIPINE
  11. DOCUSATE [Concomitant]
     Active Substance: DOCUSATE
  12. DIPHENHYDRAMINE HCL [Concomitant]
     Active Substance: DIPHENHYDRAMINE HYDROCHLORIDE
     Indication: PREMEDICATION
     Route: 048
     Dates: start: 20140813
  13. METHYLPREDNISOLONE. [Concomitant]
     Active Substance: METHYLPREDNISOLONE
     Indication: PREMEDICATION
     Route: 042
     Dates: start: 20140813
  14. HYDROCORTISONE. [Concomitant]
     Active Substance: HYDROCORTISONE
  15. SULFASALAZINE. [Concomitant]
     Active Substance: SULFASALAZINE
  16. LOSARTAN. [Concomitant]
     Active Substance: LOSARTAN
  17. LASIX [Concomitant]
     Active Substance: FUROSEMIDE
  18. SULFASALAZINE. [Concomitant]
     Active Substance: SULFASALAZINE
  19. COLCHICINE. [Concomitant]
     Active Substance: COLCHICINE
  20. RITUXAN [Suspect]
     Active Substance: RITUXIMAB
     Indication: RHEUMATOID ARTHRITIS
     Route: 042
     Dates: start: 20140813
  21. FUROSEMIDE. [Concomitant]
     Active Substance: FUROSEMIDE
  22. METHOTREXATE [Concomitant]
     Active Substance: METHOTREXATE
  23. LAX-A-DAY [Concomitant]
  24. PANTOLOC [Concomitant]
     Active Substance: PANTOPRAZOLE SODIUM
  25. LIPITOR [Concomitant]
     Active Substance: ATORVASTATIN CALCIUM
  26. TYLENOL [Concomitant]
     Active Substance: ACETAMINOPHEN

REACTIONS (8)
  - Cyst [Unknown]
  - Cardiac disorder [Unknown]
  - Intervertebral disc protrusion [Unknown]
  - Polyp [Unknown]
  - Fall [Unknown]
  - Abdominal hernia [Unknown]
  - Hernia [Unknown]
  - Infusion related reaction [Recovered/Resolved]

NARRATIVE: CASE EVENT DATE: 20140813
